FAERS Safety Report 5965417-2 (Version None)
Quarter: 2008Q4

REPORT INFORMATION
  Report Type: 
  Country: None (occurrence: None)
  Receive Date: 20081125
  Receipt Date: 20081006
  Transmission Date: 20090506
  Serious: No
  Sender: FDA-Public Use
  Company Number: US-AMGEN-KDL311537

PATIENT
  Sex: Female

DRUGS (2)
  1. ENBREL [Suspect]
     Indication: RHEUMATOID ARTHRITIS
  2. METHOTREXATE [Concomitant]

REACTIONS (4)
  - MIGRAINE [None]
  - ULCER [None]
  - VISUAL IMPAIRMENT [None]
  - VOMITING [None]
